FAERS Safety Report 14235871 (Version 3)
Quarter: 2018Q3

REPORT INFORMATION
  Report Type: Spontaneous
  Country: FR (occurrence: FR)
  Receive Date: 20171129
  Receipt Date: 20180924
  Transmission Date: 20181010
  Serious: Yes (Hospitalization)
  Sender: FDA-Public Use
  Company Number: FR-MERCK KGAA-2036233

PATIENT
  Age: 50 Year
  Sex: Female
  Weight: 50 kg

DRUGS (6)
  1. ROSUVASTATINE [Concomitant]
     Active Substance: ROSUVASTATIN
  2. CRESTOR [Concomitant]
     Active Substance: ROSUVASTATIN CALCIUM
  3. NORVIR [Concomitant]
     Active Substance: RITONAVIR
  4. VIREAD [Concomitant]
     Active Substance: TENOFOVIR DISOPROXIL FUMARATE
  5. EUTHYROX [Suspect]
     Active Substance: LEVOTHYROXINE SODIUM
     Indication: THYROIDECTOMY
     Route: 048
     Dates: start: 201703
  6. REYATAZ [Concomitant]
     Active Substance: ATAZANAVIR SULFATE

REACTIONS (16)
  - Fatigue [Not Recovered/Not Resolved]
  - Dizziness [Not Recovered/Not Resolved]
  - Vertigo [Not Recovered/Not Resolved]
  - Insomnia [Not Recovered/Not Resolved]
  - Anxiety [Not Recovered/Not Resolved]
  - Musculoskeletal stiffness [Not Recovered/Not Resolved]
  - Palpitations [Not Recovered/Not Resolved]
  - Flushing [Not Recovered/Not Resolved]
  - Dry skin [Not Recovered/Not Resolved]
  - Formication [Not Recovered/Not Resolved]
  - Abdominal pain [Not Recovered/Not Resolved]
  - Psychiatric symptom [Not Recovered/Not Resolved]
  - Malaise [Not Recovered/Not Resolved]
  - Hallucination [Not Recovered/Not Resolved]
  - Headache [Not Recovered/Not Resolved]
  - Nausea [Not Recovered/Not Resolved]

NARRATIVE: CASE EVENT DATE: 20170301
